FAERS Safety Report 16674881 (Version 1)
Quarter: 2019Q3

REPORT INFORMATION
  Report Type: Spontaneous
  Country: US (occurrence: US)
  Receive Date: 20190621
  Receipt Date: 20190621
  Transmission Date: 20191004
  Serious: No
  Sender: FDA-Public Use
  Company Number: None

PATIENT
  Age: 70 Year
  Sex: Female

DRUGS (1)
  1. KISQALI [Suspect]
     Active Substance: RIBOCICLIB
     Dates: start: 201806, end: 201809

REACTIONS (2)
  - Neoplasm malignant [None]
  - Tumour marker increased [None]

NARRATIVE: CASE EVENT DATE: 20180926
